FAERS Safety Report 23968480 (Version 1)
Quarter: 2024Q2

REPORT INFORMATION
  Report Type: Spontaneous
  Country: JP (occurrence: JP)
  Receive Date: 20240612
  Receipt Date: 20240612
  Transmission Date: 20240716
  Serious: Yes (Hospitalization)
  Sender: FDA-Public Use
  Company Number: JP-BAYER-2024A077257

PATIENT
  Age: 75 Year
  Sex: Male

DRUGS (3)
  1. NUBEQA [Suspect]
     Active Substance: DAROLUTAMIDE
     Indication: Prostate cancer metastatic
     Dosage: 600 MG, BID
     Dates: start: 20240510, end: 20240517
  2. DOCETAXEL [Concomitant]
     Active Substance: DOCETAXEL\DOCETAXEL ANHYDROUS
     Indication: Prostate cancer metastatic
     Dosage: UNK
     Dates: start: 20240510
  3. LEUPLIN [Concomitant]
     Active Substance: LEUPROLIDE ACETATE
     Indication: Prostate cancer metastatic
     Dosage: UNK
     Dates: start: 20240510

REACTIONS (5)
  - Cardiac failure congestive [None]
  - Mitral valve incompetence [None]
  - Malaise [Recovering/Resolving]
  - Dyspnoea [Recovering/Resolving]
  - Pleural effusion [None]

NARRATIVE: CASE EVENT DATE: 20240517
